FAERS Safety Report 18798872 (Version 1)
Quarter: 2021Q1

REPORT INFORMATION
  Report Type: Spontaneous
  Country: US (occurrence: US)
  Receive Date: 20210127
  Receipt Date: 20210127
  Transmission Date: 20210419
  Serious: Yes (Disabling, Other)
  Sender: FDA-Public Use
  Company Number: None

PATIENT
  Age: 61 Year
  Sex: Female
  Weight: 47.7 kg

DRUGS (7)
  1. XIIDRA [Concomitant]
     Active Substance: LIFITEGRAST
  2. VITAMIN D3 [Concomitant]
     Active Substance: CHOLECALCIFEROL
  3. FISH OIL [Concomitant]
     Active Substance: FISH OIL
  4. PROLIA [Suspect]
     Active Substance: DENOSUMAB
     Indication: OSTEOPOROSIS
     Dosage: ?          QUANTITY:1 SYRINGLE;OTHER FREQUENCY:SEMIANNUALLY;?
     Route: 058
     Dates: start: 20160504, end: 20201016
  5. FAMOTIDINE. [Concomitant]
     Active Substance: FAMOTIDINE
  6. VITAMIN B12 [Concomitant]
     Active Substance: CYANOCOBALAMIN
  7. CITRACAL [Concomitant]
     Active Substance: CALCIUM CITRATE

REACTIONS (6)
  - Diarrhoea [None]
  - Abdominal pain [None]
  - Nausea [None]
  - Anaemia [None]
  - Weight decreased [None]
  - Early satiety [None]

NARRATIVE: CASE EVENT DATE: 20201226
